FAERS Safety Report 9268904 (Version 1)
Quarter: 2013Q2

REPORT INFORMATION
  Report Type: Spontaneous
  Country: CA (occurrence: CA)
  Receive Date: 20130503
  Receipt Date: 20130503
  Transmission Date: 20140414
  Serious: Yes (Hospitalization)
  Sender: FDA-Public Use
  Company Number: CA-AMGEN-CANSP2013026063

PATIENT
  Age: 69 Year
  Sex: Female
  Weight: 79.4 kg

DRUGS (8)
  1. NEUPOGEN [Suspect]
     Indication: MANTLE CELL LYMPHOMA
     Dosage: UNK, X7, Q3WK
     Route: 058
     Dates: start: 20130221
  2. CYCLOPHOSPHAMIDE [Concomitant]
     Indication: MANTLE CELL LYMPHOMA
     Dosage: 1490 MG, Q3WK
     Route: 042
     Dates: start: 20130128
  3. DOXORUBICIN [Concomitant]
     Indication: MANTLE CELL LYMPHOMA
     Dosage: 100 MG, Q3WK
     Route: 042
     Dates: start: 20130128
  4. VINCRISTINE [Concomitant]
     Indication: MANTLE CELL LYMPHOMA
     Dosage: 2.8 MG, Q3WK
     Route: 042
     Dates: start: 20130128
  5. PREDNISONE [Concomitant]
     Indication: MANTLE CELL LYMPHOMA
     Dosage: 100 MG, Q3WK X 5 DAYS
     Route: 048
     Dates: start: 20130128
  6. RITUXIMAB [Concomitant]
     Indication: MANTLE CELL LYMPHOMA
     Dosage: 745 MG, Q3WK
     Route: 042
     Dates: start: 20130128
  7. ZYLOPRIM [Concomitant]
     Dosage: 300 MG, QD
  8. SERTRALINE [Concomitant]
     Dosage: 100 MG, QD

REACTIONS (8)
  - Pneumonia [Recovered/Resolved]
  - Pulmonary embolism [Recovering/Resolving]
  - Back pain [Not Recovered/Not Resolved]
  - Furuncle [Not Recovered/Not Resolved]
  - Subcutaneous abscess [Recovered/Resolved]
  - Syncope [Recovered/Resolved]
  - Constipation [Recovering/Resolving]
  - Bone pain [Not Recovered/Not Resolved]
